FAERS Safety Report 4851580-3 (Version None)
Quarter: 2005Q4

REPORT INFORMATION
  Report Type: 
  Country: None (occurrence: None)
  Receive Date: 20051212
  Receipt Date: 20051128
  Transmission Date: 20060501
  Serious: Yes (Hospitalization)
  Sender: FDA-Public Use
  Company Number: GB-ROCHE-426583

PATIENT
  Age: 51 Year
  Sex: Female

DRUGS (2)
  1. CAPECITABINE [Suspect]
     Indication: RECTAL CANCER
     Route: 048
     Dates: start: 20050926
  2. IRINOTECAN HCL [Suspect]
     Indication: RECTAL CANCER
     Route: 042
     Dates: start: 20050926

REACTIONS (2)
  - ANOREXIA [None]
  - BLOOD ALBUMIN DECREASED [None]
